FAERS Safety Report 7998883-1 (Version None)
Quarter: 2011Q4

REPORT INFORMATION
  Report Type: 
  Country: None (occurrence: None)
  Receive Date: 20111221
  Receipt Date: 20111219
  Transmission Date: 20120403
  Serious: Yes (Other)
  Sender: FDA-Public Use
  Company Number: US-GLAXOSMITHKLINE-A0958658A

PATIENT
  Age: 56 Year
  Sex: Female

DRUGS (7)
  1. ATIVAN [Concomitant]
  2. BYSTOLIC [Concomitant]
  3. VITAMIN C [Concomitant]
  4. LOVAZA [Suspect]
     Indication: BLOOD TRIGLYCERIDES INCREASED
     Dosage: 1CAP TWICE PER DAY
     Route: 048
     Dates: start: 20110801
  5. NASONEX [Concomitant]
  6. VITAMIN B COMPLEX CAP [Concomitant]
  7. MULTI-VITAMIN [Concomitant]

REACTIONS (2)
  - EPISTAXIS [None]
  - EYE HAEMORRHAGE [None]
